FAERS Safety Report 23458756 (Version 1)
Quarter: 2024Q1

REPORT INFORMATION
  Report Type: Spontaneous
  Country: US (occurrence: US)
  Receive Date: 20240130
  Receipt Date: 20240130
  Transmission Date: 20240410
  Serious: Yes (Death, Other)
  Sender: FDA-Public Use
  Company Number: US-002147023-PHHY2019US144173

PATIENT

DRUGS (6)
  1. TERBINAFINE [Suspect]
     Active Substance: TERBINAFINE
     Indication: Aspergillus infection
     Dosage: UNK(0.06 UNK, UNK)
     Route: 065
  2. VORICONAZOLE [Suspect]
     Active Substance: VORICONAZOLE
     Indication: Aspergillus infection
     Dosage: UNK(0.25 UNK, UNK)
     Route: 065
  3. MICAFUNGIN [Suspect]
     Active Substance: MICAFUNGIN SODIUM
     Indication: Aspergillus infection
     Dosage: UNK(0.015 UNK, UNK)
     Route: 065
  4. AMPHOTERICIN B [Suspect]
     Active Substance: AMPHOTERICIN B
     Indication: Aspergillus infection
     Dosage: UNK(2 UNK, UNK)
     Route: 065
  5. POSACONAZOLE [Suspect]
     Active Substance: POSACONAZOLE
     Indication: Aspergillus infection
     Dosage: UNK (0.25 UNK, UNK)
     Route: 065
  6. GRANULOCYTE-MACROPHAGE COLONY-STIMULATING FACTOR [Suspect]
     Active Substance: GRANULOCYTE-MACROPHAGE COLONY-STIMULATING FACTOR
     Indication: Aspergillus infection
     Dosage: UNK
     Route: 065

REACTIONS (2)
  - Aspergillus infection [Fatal]
  - Disease progression [Fatal]
